FAERS Safety Report 22661896 (Version 1)
Quarter: 2023Q2

REPORT INFORMATION
  Report Type: Report from Study
  Country: CH (occurrence: CH)
  Receive Date: 20230630
  Receipt Date: 20230630
  Transmission Date: 20230721
  Serious: Yes (Hospitalization, Other)
  Sender: FDA-Public Use
  Company Number: CH-TAKEDA-CH201501464

PATIENT
  Age: 8 Year
  Sex: Male
  Weight: 25 kg

DRUGS (4)
  1. IDURSULFASE [Suspect]
     Active Substance: IDURSULFASE
     Indication: Mucopolysaccharidosis II
     Dosage: 0.5 MILLIGRAM/KILOGRAM, 1/WEEK
     Route: 042
     Dates: start: 20070714, end: 20151204
  2. VALPROATE SODIUM [Concomitant]
     Active Substance: VALPROATE SODIUM
     Indication: Seizure
     Dosage: UNK
     Route: 065
     Dates: start: 20110331
  3. VENTOLIN [Concomitant]
     Active Substance: ALBUTEROL SULFATE
     Indication: Lung disorder
     Dosage: UNK
     Route: 050
     Dates: start: 2008
  4. FLUTICASONE PROPIONATE [Concomitant]
     Active Substance: FLUTICASONE PROPIONATE
     Indication: Lung disorder
     Dosage: UNK
     Route: 050
     Dates: start: 2008

REACTIONS (1)
  - Hydrocephalus [Recovered/Resolved]

NARRATIVE: CASE EVENT DATE: 20110420
